FAERS Safety Report 12030446 (Version 1)
Quarter: 2016Q1

REPORT INFORMATION
  Report Type: Report from Study
  Country: US (occurrence: US)
  Receive Date: 20160207
  Receipt Date: 20160207
  Transmission Date: 20160526
  Serious: No
  Sender: FDA-Public Use
  Company Number: US-ABBVIE-15K-163-1502749-00

PATIENT
  Sex: Male
  Weight: 41.95 kg

DRUGS (2)
  1. METHOTREXATE [Suspect]
     Active Substance: METHOTREXATE
     Indication: PRODUCT USED FOR UNKNOWN INDICATION
     Route: 065
     Dates: start: 201508
  2. HUMIRA [Suspect]
     Active Substance: ADALIMUMAB
     Indication: CROHN^S DISEASE
     Route: 058
     Dates: start: 201501

REACTIONS (9)
  - Malaise [Unknown]
  - Haematochezia [Recovered/Resolved]
  - Drug effect incomplete [Unknown]
  - Headache [Unknown]
  - Blood calcium increased [Recovered/Resolved]
  - Migraine [Not Recovered/Not Resolved]
  - Nausea [Unknown]
  - Asthenia [Unknown]
  - Hepatic enzyme increased [Recovered/Resolved]
